FAERS Safety Report 5126128-9 (Version None)
Quarter: 2006Q3

REPORT INFORMATION
  Report Type: 
  Country: None (occurrence: None)
  Receive Date: 20060811
  Receipt Date: 20060606
  Transmission Date: 20061208
  Serious: No
  Sender: FDA-Public Use
  Company Number: S06-USA-02246-01

PATIENT
  Age: 35 Year
  Sex: Male

DRUGS (7)
  1. NAMENDA [Suspect]
     Indication: ARTHRALGIA
     Dosage: 5 MG QD PO
     Route: 048
     Dates: start: 20060531
  2. NAMENDA [Suspect]
     Indication: BACK PAIN
     Dosage: 5 MG QD PO
     Route: 048
     Dates: start: 20060531
  3. VALIUM [Concomitant]
  4. OXYCODONE HCL [Concomitant]
  5. METHADONE HCL [Concomitant]
  6. PREDNISONE TAB [Concomitant]
  7. HYDROXYZINE [Concomitant]

REACTIONS (2)
  - PRURITUS [None]
  - URTICARIA [None]
